FAERS Safety Report 8650311 (Version 3)
Quarter: 2012Q4

REPORT INFORMATION
  Report Type: 
  Country: DE (occurrence: DE)
  Receive Date: 20120705
  Receipt Date: 20120907
  Transmission Date: 20130627
  Serious: Yes (Hospitalization)
  Sender: FDA-Public Use
  Company Number: DE-UCBSA-060781

PATIENT
  Age: 71 None
  Sex: Female

DRUGS (3)
  1. CIMZIA [Suspect]
     Dates: start: 2012
  2. CORTISONE [Concomitant]
  3. ARAVA [Concomitant]

REACTIONS (1)
  - Pneumonia [Recovering/Resolving]
